FAERS Safety Report 5702614-5 (Version None)
Quarter: 2008Q2

REPORT INFORMATION
  Report Type: 
  Country: None (occurrence: None)
  Receive Date: 20080411
  Receipt Date: 20080402
  Transmission Date: 20081010
  Serious: Yes (Other)
  Sender: FDA-Public Use
  Company Number: US-ELI_LILLY_AND_COMPANY-US200803005701

PATIENT
  Sex: Male
  Weight: 28.118 kg

DRUGS (1)
  1. HUMATROPE [Suspect]
     Dates: start: 20080325

REACTIONS (4)
  - CRYING [None]
  - FEAR [None]
  - FEELING HOT [None]
  - LOSS OF CONSCIOUSNESS [None]
